FAERS Safety Report 12936068 (Version 1)
Quarter: 2016Q4

REPORT INFORMATION
  Report Type: Spontaneous
  Country: US (occurrence: US)
  Receive Date: 20161110
  Receipt Date: 20161110
  Transmission Date: 20170207
  Serious: Yes (Other)
  Sender: FDA-Public Use
  Company Number: None

PATIENT
  Age: 73 Year
  Sex: Female
  Weight: 56.25 kg

DRUGS (4)
  1. FML [Suspect]
     Active Substance: FLUOROMETHOLONE
     Indication: DRY EYE
     Dosage: ?          QUANTITY:3.5 G;OTHER ROUTE:APPLY TO EYE?
     Route: 047
     Dates: start: 20161107, end: 20161107
  2. HYDROCHLOROTHIAZIDE. [Concomitant]
     Active Substance: HYDROCHLOROTHIAZIDE
  3. LOSARTAN. [Concomitant]
     Active Substance: LOSARTAN
  4. FML [Suspect]
     Active Substance: FLUOROMETHOLONE
     Indication: OCULAR HYPERAEMIA
     Dosage: ?          QUANTITY:3.5 G;OTHER ROUTE:APPLY TO EYE?
     Route: 047
     Dates: start: 20161107, end: 20161107

REACTIONS (6)
  - Eyelid pain [None]
  - Pruritus [None]
  - Eyelid oedema [None]
  - Erythema of eyelid [None]
  - Eye pain [None]
  - Abnormal sensation in eye [None]

NARRATIVE: CASE EVENT DATE: 20161107
